FAERS Safety Report 8963877 (Version 2)
Quarter: 2013Q1

REPORT INFORMATION
  Report Type: Report from Study
  Country: JP (occurrence: JP)
  Receive Date: 20121214
  Receipt Date: 20130111
  Transmission Date: 20140127
  Serious: Yes (Death, Hospitalization)
  Sender: FDA-Public Use
  Company Number: JP-MERCK-1204USA02506

PATIENT
  Age: 35 Year
  Sex: Male

DRUGS (34)
  1. ZOLINZA CAPSULES 100MG [Suspect]
     Indication: MYCOSIS FUNGOIDES
     Dosage: 400 MG DAILY
     Route: 048
     Dates: start: 20120223, end: 20120516
  2. ZOLINZA CAPSULES 100MG [Suspect]
     Indication: MYCOSIS FUNGOIDES
     Dosage: 300 MG DAILY
     Route: 048
     Dates: start: 20120517, end: 20120613
  3. ALOSITOL [Concomitant]
     Dosage: 100 MG DAILY
     Route: 048
     Dates: start: 20120223, end: 20120229
  4. URSO [Concomitant]
     Indication: CHRONIC GRAFT VERSUS HOST DISEASE
     Dosage: 200 MG, TID
     Route: 048
     Dates: start: 20120223
  5. TRANSAMIN [Concomitant]
     Indication: PROPHYLAXIS
     Dosage: 250 MG, TID
     Route: 048
     Dates: start: 20120223, end: 20120229
  6. TRANSAMIN [Concomitant]
     Indication: MOUTH HAEMORRHAGE
     Dosage: 250 MG, TID
     Route: 048
     Dates: start: 20120423, end: 20120524
  7. BAKTAR [Concomitant]
     Dosage: 1 DF, QD
     Route: 048
     Dates: start: 20120223, end: 20120306
  8. PARIET [Concomitant]
     Indication: PROPHYLAXIS AGAINST GASTROINTESTINAL ULCER
     Dosage: 10 MG, QD
     Route: 048
     Dates: start: 20120223, end: 20120524
  9. VALTREX [Concomitant]
     Dosage: 500 MG, QD
     Route: 048
     Dates: start: 20120223, end: 20120306
  10. HIRUDOID [Concomitant]
     Indication: CHRONIC GRAFT VERSUS HOST DISEASE
     Dosage: PROPER QUANTITIES(G)XSEVERAL-TIME/DAY
     Route: 061
     Dates: start: 20120225
  11. PRIMPERAN [Concomitant]
     Indication: PROPHYLAXIS
     Dosage: 5 MG, QD
     Route: 048
     Dates: start: 20120223
  12. MAGLAX [Concomitant]
     Indication: CONSTIPATION
     Dosage: 250 MG, TID
     Route: 048
     Dates: start: 20120302, end: 20120331
  13. PREDONINE [Concomitant]
     Indication: MYCOSIS FUNGOIDES
     Dosage: 25 MG, UNK
     Route: 048
     Dates: start: 20120223, end: 20120228
  14. PREDONINE [Concomitant]
     Dosage: 20 MG DAILY
     Route: 048
     Dates: start: 20120229, end: 20120306
  15. PREDONINE [Concomitant]
     Dosage: 5 MG DAILY
     Route: 048
     Dates: end: 20120524
  16. CHLOR-TRIMETON [Concomitant]
     Indication: PROPHYLAXIS
     Dosage: 10 MG, UNK
     Route: 051
     Dates: start: 20120301, end: 20120302
  17. CHLOR-TRIMETON [Concomitant]
     Dosage: 10 MG DAILY
     Route: 051
     Dates: start: 20120329, end: 20120329
  18. SOLU-CORTEF [Concomitant]
     Indication: PROPHYLAXIS
     Dosage: 100 MG, QD
     Route: 051
     Dates: start: 20120229, end: 20120305
  19. SOLU-CORTEF [Concomitant]
     Dosage: 100 MG DAILY
     Route: 051
     Dates: start: 20120329, end: 20120329
  20. POSTERISAN [Concomitant]
     Indication: HAEMORRHOIDS
     Dosage: 1 DF, BID
     Route: 061
     Dates: end: 20120412
  21. CIPROXAN [Concomitant]
     Indication: INFECTION PROPHYLAXIS
     Dosage: 400 MG, QD
     Route: 048
     Dates: start: 20120413, end: 20120524
  22. MYCOSYST [Concomitant]
     Indication: INFECTION PROPHYLAXIS
     Dosage: 200 MG, QD
     Route: 048
     Dates: start: 20120413, end: 20120524
  23. ADONA [Concomitant]
     Indication: MOUTH HAEMORRHAGE
     Dosage: 30 MG, TID
     Route: 048
     Dates: start: 20120423, end: 20120524
  24. PREDONINE [Concomitant]
     Indication: MYCOSIS FUNGOIDES
     Dosage: 20 MG, QD
     Route: 051
     Dates: start: 20120225, end: 20120228
  25. PREDONINE [Concomitant]
     Dosage: 50 MG DAILY
     Route: 051
     Dates: start: 20120529, end: 20120614
  26. PREDONINE [Concomitant]
     Dosage: 40 MG DAILY
     Route: 051
     Dates: start: 20120615, end: 20120707
  27. MORPHINE HYDROCHLORIDE [Concomitant]
     Indication: MYCOSIS FUNGOIDES
     Dosage: 20 MG, QD
     Route: 051
     Dates: start: 20120701, end: 20120701
  28. MORPHINE HYDROCHLORIDE [Concomitant]
     Dosage: 10 MG DAILY
     Route: 051
     Dates: start: 20120702, end: 20120702
  29. MORPHINE HYDROCHLORIDE [Concomitant]
     Dosage: 50 MG DAILY
     Route: 051
     Dates: start: 20120707, end: 20120707
  30. ENTERONON R [Concomitant]
     Indication: DIARRHOEA
     Dosage: 3 MG, TID
     Route: 048
     Dates: start: 20120427, end: 201207
  31. TANNALBIN [Concomitant]
     Indication: DIARRHOEA
     Dosage: 1 G, TID
     Route: 048
     Dates: start: 20120607, end: 20120704
  32. LOPEMIN [Concomitant]
     Indication: DIARRHOEA
     Dosage: 1 G, BID
     Route: 048
     Dates: start: 20120611, end: 20120619
  33. LASIX (FUROSEMIDE) [Concomitant]
     Indication: OEDEMA
     Dosage: 40 MG, QD
     Route: 048
     Dates: start: 20120620, end: 20120701
  34. LASIX (FUROSEMIDE) [Concomitant]
     Dosage: 20 MG, QD
     Route: 048
     Dates: start: 20120627, end: 20120630

REACTIONS (17)
  - Pneumonia [Fatal]
  - Diarrhoea [Fatal]
  - Stomatitis [Not Recovered/Not Resolved]
  - Proctalgia [Not Recovered/Not Resolved]
  - Pneumocystis jirovecii pneumonia [Not Recovered/Not Resolved]
  - Oedema [Not Recovered/Not Resolved]
  - Malaise [Not Recovered/Not Resolved]
  - Blood pressure increased [Fatal]
  - Sepsis [Recovered/Resolved]
  - Hypokalaemia [Recovered/Resolved]
  - Dehydration [Recovered/Resolved]
  - Nausea [Not Recovered/Not Resolved]
  - Platelet count decreased [Not Recovered/Not Resolved]
  - Blood bilirubin increased [Recovered/Resolved]
  - Drug ineffective [Unknown]
  - Blood urea increased [Recovered/Resolved]
  - Pyrexia [Not Recovered/Not Resolved]
